FAERS Safety Report 9741253 (Version 1)
Quarter: 2013Q4

REPORT INFORMATION
  Report Type: Spontaneous
  Country: US (occurrence: US)
  Receive Date: 20131209
  Receipt Date: 20131209
  Transmission Date: 20140711
  Serious: No
  Sender: FDA-Public Use
  Company Number: US-BIOGENIDEC-2013BI100100

PATIENT
  Age: 49 Year
  Sex: Female

DRUGS (2)
  1. TECFIDERA [Suspect]
     Indication: MULTIPLE SCLEROSIS
     Route: 048
     Dates: start: 20130827
  2. PROPRANOLOL [Concomitant]
     Route: 048

REACTIONS (3)
  - Loss of consciousness [Unknown]
  - Hypotension [Unknown]
  - Diarrhoea [Unknown]
